FAERS Safety Report 24071363 (Version 1)
Quarter: 2024Q3

REPORT INFORMATION
  Report Type: Report from Study
  Country: EG (occurrence: EG)
  Receive Date: 20240710
  Receipt Date: 20240710
  Transmission Date: 20241017
  Serious: No
  Sender: ROCHE
  Company Number: EG-ROCHE-3556962

PATIENT
  Age: 1 Year
  Sex: Male
  Weight: 9.5 kg

DRUGS (1)
  1. EVRYSDI [Suspect]
     Active Substance: RISDIPLAM
     Indication: Spinal muscular atrophy
     Route: 048

REACTIONS (5)
  - Inflammation [Not Recovered/Not Resolved]
  - Immunodeficiency [Not Recovered/Not Resolved]
  - Feeding disorder [Not Recovered/Not Resolved]
  - Body temperature increased [Not Recovered/Not Resolved]
  - Weight increased [Unknown]
